FAERS Safety Report 9419466 (Version 1)
Quarter: 2013Q3

REPORT INFORMATION
  Report Type: Spontaneous
  Country: US (occurrence: None)
  Receive Date: 20130724
  Receipt Date: 20130724
  Transmission Date: 20140515
  Serious: Yes (Hospitalization)
  Sender: FDA-Public Use
  Company Number: None

PATIENT
  Age: 59 Year
  Sex: Male
  Weight: 68.04 kg

DRUGS (6)
  1. BEVACIZUMAB [Suspect]
     Indication: HEPATOCELLULAR INJURY
     Dosage: DAY 1 AND 15 IV
     Route: 042
     Dates: start: 20120612
  2. ERLOTINIB [Suspect]
     Dosage: 9 DAY PO
     Route: 048
     Dates: start: 20130307, end: 20130328
  3. HUMIRA [Concomitant]
  4. LORTAB [Concomitant]
  5. BUSPAR [Concomitant]
  6. NADOLOL [Concomitant]

REACTIONS (11)
  - Gastrointestinal haemorrhage [None]
  - Hypotension [None]
  - Hyperkalaemia [None]
  - Portal hypertensive gastropathy [None]
  - Coagulopathy [None]
  - Multi-organ failure [None]
  - Hepatic failure [None]
  - Varices oesophageal [None]
  - Ascites [None]
  - Pneumatosis intestinalis [None]
  - Hepatic failure [None]
